FAERS Safety Report 9685319 (Version 2)
Quarter: 2013Q4

REPORT INFORMATION
  Report Type: Report from Study
  Country: US (occurrence: US)
  Receive Date: 20131113
  Receipt Date: 20131114
  Transmission Date: 20140711
  Serious: Yes (Hospitalization)
  Sender: FDA-Public Use
  Company Number: US-JNJFOC-20131102635

PATIENT
  Age: 12 Year
  Sex: Male
  Weight: 60.9 kg

DRUGS (6)
  1. REMICADE [Suspect]
     Indication: CROHN^S DISEASE
     Route: 042
     Dates: start: 20110112
  2. MULTIVITAMIN [Concomitant]
     Route: 065
  3. LORATADINE [Concomitant]
     Route: 065
  4. CHOLECALCIFEROL [Concomitant]
     Route: 065
  5. FLUTICASONE [Concomitant]
     Route: 065
  6. FLUTICASONE [Concomitant]
     Route: 048

REACTIONS (1)
  - Status asthmaticus [Recovered/Resolved]
